FAERS Safety Report 7070189-7 (Version None)
Quarter: 2010Q4

REPORT INFORMATION
  Report Type: 
  Country: None (occurrence: None)
  Receive Date: 20101028
  Receipt Date: 20100920
  Transmission Date: 20110411
  Serious: No
  Sender: FDA-Public Use
  Company Number: US-WYE-H17664310

PATIENT
  Sex: Female
  Weight: 61.29 kg

DRUGS (3)
  1. PROTONIX [Suspect]
     Indication: GASTROOESOPHAGEAL REFLUX DISEASE
     Dates: start: 20100909
  2. DICLOFENAC SODIUM [Concomitant]
  3. ZOCOR [Concomitant]

REACTIONS (1)
  - ABDOMINAL DISTENSION [None]
